FAERS Safety Report 11970097 (Version 2)
Quarter: 2016Q1

REPORT INFORMATION
  Report Type: Spontaneous
  Country: US (occurrence: US)
  Receive Date: 20160128
  Receipt Date: 20160222
  Transmission Date: 20160526
  Serious: Yes (Death)
  Sender: FDA-Public Use
  Company Number: US-ROXANE LABORATORIES, INC.-2016-RO-00183RO

PATIENT
  Sex: Male
  Weight: 62 kg

DRUGS (5)
  1. PROPRANOLOL [Concomitant]
     Active Substance: PROPRANOLOL\PROPRANOLOL HYDROCHLORIDE
     Indication: HYPERTENSION
     Dosage: 120 MG
     Route: 065
  2. CLOPIDOGREL [Concomitant]
     Active Substance: CLOPIDOGREL BISULFATE
     Indication: PROPHYLAXIS
     Dosage: 75 MG
     Route: 065
  3. MEGESTROL ACETATE ORAL SUSPENSION, 40 MG/ML [Suspect]
     Active Substance: MEGESTROL ACETATE
     Indication: WEIGHT INCREASED
     Dosage: 80 MG
     Route: 048
     Dates: end: 20160122
  4. ATORVASTATIN [Concomitant]
     Active Substance: ATORVASTATIN
     Indication: BLOOD CHOLESTEROL INCREASED
     Dosage: 10 MG
     Route: 065
  5. METFORMIN [Concomitant]
     Active Substance: METFORMIN HYDROCHLORIDE
     Indication: GLUCOSE TOLERANCE IMPAIRED
     Dosage: 1000 MG
     Route: 065

REACTIONS (3)
  - Acute kidney injury [Fatal]
  - Hyperkalaemia [Fatal]
  - Rash pruritic [Not Recovered/Not Resolved]
